FAERS Safety Report 7457786-1 (Version None)
Quarter: 2011Q2

REPORT INFORMATION
  Report Type: 
  Country: None (occurrence: None)
  Receive Date: 20110504
  Receipt Date: 20110419
  Transmission Date: 20111010
  Serious: Yes (Other)
  Sender: FDA-Public Use
  Company Number: US-ROCHE-774400

PATIENT
  Sex: Female
  Weight: 70.8 kg

DRUGS (2)
  1. ACTEMRA [Suspect]
     Dosage: FORM: INFUSION
     Route: 042
     Dates: start: 20100101
  2. METHOTREXATE [Concomitant]

REACTIONS (1)
  - SUNBURN [None]
